FAERS Safety Report 15535804 (Version 1)
Quarter: 2018Q4

REPORT INFORMATION
  Report Type: Spontaneous
  Country: US (occurrence: US)
  Receive Date: 20181021
  Receipt Date: 20181021
  Transmission Date: 20190205
  Serious: Yes (Other)
  Sender: FDA-Public Use
  Company Number: None

PATIENT
  Age: 33 Year
  Sex: Female
  Weight: 65.25 kg

DRUGS (1)
  1. SOLOSEC [Suspect]
     Active Substance: SECNIDAZOLE
     Indication: BACTERIAL VAGINOSIS
     Dosage: ?          QUANTITY:1 2G GRANULES;?
     Route: 048
     Dates: start: 20181019, end: 20181019

REACTIONS (3)
  - Dizziness [None]
  - Asthenia [None]
  - Vomiting projectile [None]

NARRATIVE: CASE EVENT DATE: 20181020
